FAERS Safety Report 8711279 (Version 3)
Quarter: 2013Q4

REPORT INFORMATION
  Report Type: Spontaneous
  Country: PL (occurrence: None)
  Receive Date: 20120723
  Receipt Date: 20131223
  Transmission Date: 20140711
  Serious: Yes (Other)
  Sender: FDA-Public Use
  Company Number: EUS-2012-00475

PATIENT
  Age: 15 Year
  Sex: Male

DRUGS (2)
  1. ASPARAGINASE [Suspect]
     Indication: ACUTE LYMPHOCYTIC LEUKAEMIA
  2. GLUCOCORTICOSTEROIDS (GLUCOCORTICOSTEROIDS) [Concomitant]

REACTIONS (8)
  - Hypertriglyceridaemia [None]
  - Hypercholesterolaemia [None]
  - Low density lipoprotein increased [None]
  - Cholestasis [None]
  - Pancytopenia [None]
  - Sepsis [None]
  - Staphylococcal infection [None]
  - Hepatic steatosis [None]
